FAERS Safety Report 7560100-4 (Version None)
Quarter: 2011Q2

REPORT INFORMATION
  Report Type: 
  Country: None (occurrence: None)
  Receive Date: 20110621
  Receipt Date: 20110602
  Transmission Date: 20111010
  Serious: Yes (Death, Hospitalization)
  Sender: FDA-Public Use
  Company Number: A0839989A

PATIENT
  Age: 75 Year
  Sex: Female
  Weight: 79.5 kg

DRUGS (7)
  1. SIMVASTATIN [Concomitant]
  2. LEVOTHYROXINE SODIUM [Concomitant]
  3. NIFEREX [Concomitant]
  4. CYMBALTA [Concomitant]
  5. OMEPRAZOLE [Concomitant]
  6. AVANDIA [Suspect]
     Indication: DIABETES MELLITUS
     Dosage: 8MG PER DAY
     Route: 048
     Dates: start: 20020706, end: 20081008
  7. COZAAR [Concomitant]

REACTIONS (4)
  - DEATH [None]
  - MYOCARDIAL INFARCTION [None]
  - CARDIAC FAILURE CONGESTIVE [None]
  - CEREBROVASCULAR ACCIDENT [None]
